FAERS Safety Report 5267701-7 (Version None)
Quarter: 2007Q1

REPORT INFORMATION
  Report Type: 
  Country: None (occurrence: None)
  Receive Date: 20070316
  Receipt Date: 20070305
  Transmission Date: 20070707
  Serious: Yes (Other)
  Sender: FDA-Public Use
  Company Number: US-PFIZER INC-2007017717

PATIENT
  Sex: Male
  Weight: 86.2 kg

DRUGS (4)
  1. CHANTIX [Suspect]
     Indication: EX-SMOKER
     Route: 048
     Dates: start: 20070201, end: 20070208
  2. PHENYTOIN [Concomitant]
  3. VITAMINS [Concomitant]
  4. GARLIC [Concomitant]

REACTIONS (5)
  - CONVULSION [None]
  - INTERVERTEBRAL DISC DISORDER [None]
  - SMOKER [None]
  - SPINAL FRACTURE [None]
  - UNEVALUABLE EVENT [None]
